FAERS Safety Report 8547685-6 (Version None)
Quarter: 2012Q3

REPORT INFORMATION
  Report Type: 
  Country: None (occurrence: None)
  Receive Date: 20120727
  Receipt Date: 20111205
  Transmission Date: 20120928
  Serious: Yes (Other)
  Sender: FDA-Public Use
  Company Number: US-ASTRAZENECA-2011SE72156

PATIENT
  Age: 24 Year
  Sex: Female
  Weight: 54.4 kg

DRUGS (4)
  1. LAMICTAL [Concomitant]
  2. TOPAMAX [Concomitant]
  3. XELEXA [Concomitant]
  4. SEROQUEL XR [Suspect]
     Indication: BIPOLAR DISORDER
     Route: 048
     Dates: start: 20111101

REACTIONS (7)
  - ANXIETY [None]
  - PAIN [None]
  - PARANOIA [None]
  - DRUG DOSE OMISSION [None]
  - NIGHTMARE [None]
  - CONVULSION [None]
  - ABNORMAL DREAMS [None]
